FAERS Safety Report 14093775 (Version 1)
Quarter: 2017Q4

REPORT INFORMATION
  Report Type: Spontaneous
  Country: CA (occurrence: CA)
  Receive Date: 20171016
  Receipt Date: 20171016
  Transmission Date: 20180321
  Serious: Yes (Other)
  Sender: FDA-Public Use
  Company Number: CA-MYLANLABS-M-EU-2012070197

PATIENT
  Age: 55 Year
  Sex: Female

DRUGS (10)
  1. CESAMET [Suspect]
     Active Substance: NABILONE
     Indication: BACK PAIN
     Dosage: 0.25 MG, BID
     Route: 048
     Dates: end: 201108
  2. ESCITALOPRAM [Suspect]
     Active Substance: ESCITALOPRAM OXALATE
     Indication: DEPRESSION
     Dosage: 20 MG, QD
     Route: 048
     Dates: end: 201108
  3. BUTRANS [Suspect]
     Active Substance: BUPRENORPHINE
     Dosage: 15 ?G, QH
     Route: 062
  4. ESCITALOPRAM [Suspect]
     Active Substance: ESCITALOPRAM OXALATE
     Indication: ANXIETY
  5. BUTRANS [Suspect]
     Active Substance: BUPRENORPHINE
     Indication: PAIN
     Dosage: 20 ?G, QH
     Route: 062
     Dates: start: 201108, end: 2011
  6. BUTRANS [Suspect]
     Active Substance: BUPRENORPHINE
     Dosage: 5 ?G, QH
     Route: 062
  7. CLONAZEPAM. [Suspect]
     Active Substance: CLONAZEPAM
     Indication: ANXIETY
     Dosage: 1 MG, TID
     Route: 048
     Dates: start: 20111211
  8. CIPRO XL [Concomitant]
     Active Substance: CIPROFLOXACIN\CIPROFLOXACIN HYDROCHLORIDE
     Indication: URINARY TRACT INFECTION
     Dosage: 1000 MG, QD
     Route: 048
     Dates: start: 20111208
  9. BACLOFEN. [Suspect]
     Active Substance: BACLOFEN
     Indication: MUSCLE SPASMS
     Dosage: 20 MG, TID
  10. BUTRANS [Suspect]
     Active Substance: BUPRENORPHINE
     Dosage: 10 ?G, QH
     Route: 062

REACTIONS (21)
  - Drug interaction [Recovering/Resolving]
  - Hallucination [Recovering/Resolving]
  - Pulse pressure increased [Recovering/Resolving]
  - Diarrhoea [Recovering/Resolving]
  - Dyspnoea [Recovering/Resolving]
  - Asthenia [Recovering/Resolving]
  - Dizziness [Recovering/Resolving]
  - Muscle spasms [Not Recovered/Not Resolved]
  - Euphoric mood [Recovering/Resolving]
  - Balance disorder [Recovering/Resolving]
  - Gait inability [Recovering/Resolving]
  - Anxiety [Unknown]
  - Hypopnoea [Recovering/Resolving]
  - Palpitations [Recovering/Resolving]
  - Vomiting [Recovering/Resolving]
  - Headache [Not Recovered/Not Resolved]
  - Disturbance in attention [Recovering/Resolving]
  - Somnolence [Recovering/Resolving]
  - Gait disturbance [Recovering/Resolving]
  - Disorientation [Recovering/Resolving]
  - Urinary tract infection [Unknown]

NARRATIVE: CASE EVENT DATE: 201108
